FAERS Safety Report 9527801 (Version 1)
Quarter: 2013Q1

REPORT INFORMATION
  Report Type: Spontaneous
  Country: US (occurrence: None)
  Receive Date: 20130314
  Receipt Date: 20130314
  Transmission Date: 20140127
  Serious: No
  Sender: FDA-Public Use
  Company Number: 1209USA002126

PATIENT
  Age: 49 Year
  Sex: Male

DRUGS (5)
  1. VICTRELIS [Suspect]
     Dosage: 800 MG, TID, ORAL
     Route: 048
     Dates: start: 201208
  2. PEG-INTRON (PEGINTERFERON ALFA-2B) POWDER FOR INJECTION [Concomitant]
  3. RIBASPHERE (RIBAIRIN) [Concomitant]
  4. CHONDROITIN SULFATE SODIUM (CHONDROITIN SULFATE SODIUM) CAPSULE [Concomitant]
  5. VITAMINS (UNSPECIFIED) (VITAMINS (UNSPECIFIED) TABLET [Concomitant]

REACTIONS (1)
  - Asthenia [None]
